FAERS Safety Report 8662936 (Version 2)
Quarter: 2012Q4

REPORT INFORMATION
  Report Type: 
  Country: US (occurrence: US)
  Receive Date: 20120712
  Receipt Date: 20121003
  Transmission Date: 20130627
  Serious: No
  Sender: FDA-Public Use
  Company Number: US-TEVA-345247USA

PATIENT
  Age: 18 Year
  Sex: Male

DRUGS (1)
  1. NUVIGIL [Suspect]
     Dosage: unknown

REACTIONS (1)
  - Rash [Unknown]
